FAERS Safety Report 6259440-0 (Version None)
Quarter: 2009Q3

REPORT INFORMATION
  Report Type: 
  Country: None (occurrence: None)
  Receive Date: 20090708
  Receipt Date: 20090629
  Transmission Date: 20100115
  Serious: Yes (Hospitalization)
  Sender: FDA-Public Use
  Company Number: US-BIOGENIDEC-2008BI035089

PATIENT
  Age: 24 Year
  Sex: Female
  Weight: 77 kg

DRUGS (2)
  1. TYSABRI [Suspect]
     Indication: CROHN'S DISEASE
     Route: 042
     Dates: start: 20081006
  2. NEXIUM [Concomitant]

REACTIONS (7)
  - CENTRAL NERVOUS SYSTEM LESION [None]
  - CHOLECYSTITIS [None]
  - CHOLELITHIASIS [None]
  - HEADACHE [None]
  - INFLUENZA LIKE ILLNESS [None]
  - KIDNEY INFECTION [None]
  - PYREXIA [None]
